FAERS Safety Report 8246334-4 (Version None)
Quarter: 2012Q1

REPORT INFORMATION
  Report Type: 
  Country: None (occurrence: None)
  Receive Date: 20120329
  Receipt Date: 20120329
  Transmission Date: 20120608
  Serious: Yes (Other)
  Sender: FDA-Public Use
  Company Number: None

PATIENT
  Age: 60 Year
  Sex: Male

DRUGS (1)
  1. WELLBUTRIN XL [Suspect]
     Dosage: 300MG 1X/DAY PO
     Route: 048
     Dates: start: 20120301, end: 20120311

REACTIONS (5)
  - RESTLESSNESS [None]
  - SUICIDAL IDEATION [None]
  - PRODUCT SUBSTITUTION ISSUE [None]
  - DEPRESSION [None]
  - INSOMNIA [None]
